FAERS Safety Report 5018426-4 (Version None)
Quarter: 2006Q2

REPORT INFORMATION
  Report Type: 
  Country: None (occurrence: None)
  Receive Date: 20060530
  Receipt Date: 20050601
  Transmission Date: 20061013
  Serious: Yes (Hospitalization)
  Sender: FDA-Public Use
  Company Number: 2005079723

PATIENT
  Age: 52 Year
  Sex: Female
  Weight: 69 kg

DRUGS (15)
  1. LYRICA [Suspect]
     Indication: NEURALGIA
     Dosage: 150 MG (50 MG, 3 IN 1 D), ORAL
     Route: 048
     Dates: start: 20050509, end: 20050511
  2. PARACETAMOL [Concomitant]
  3. ZOPICLONE [Concomitant]
  4. ALL OTHER THERAPEUTIC PRODUCTS [Concomitant]
  5. MORPHINE SULFATE [Concomitant]
  6. BACTRIM [Concomitant]
  7. ORAMORPH SR [Concomitant]
  8. ALL OTHER THERAPEUTIC PRODUCTS [Concomitant]
  9. LACTULOSE [Concomitant]
  10. SENNA SYRUP (SENNA LIQUID EXTRACT) [Concomitant]
  11. NYSTATIN [Concomitant]
  12. BACTRIM [Concomitant]
  13. TRAMADOL HCL [Concomitant]
  14. ORAMORPH SR [Concomitant]
  15. HYOSCINE HBR HYT [Concomitant]

REACTIONS (3)
  - DIZZINESS [None]
  - EPISTAXIS [None]
  - FEELING DRUNK [None]
